FAERS Safety Report 25898489 (Version 2)
Quarter: 2025Q4

REPORT INFORMATION
  Report Type: Spontaneous
  Country: EU (occurrence: EU)
  Receive Date: 20251009
  Receipt Date: 20251120
  Transmission Date: 20260118
  Serious: Yes (Other)
  Sender: TEVA
  Company Number: None

PATIENT
  Age: 32 Year
  Sex: Female

DRUGS (4)
  1. DIAZEPAM [Suspect]
     Active Substance: DIAZEPAM
     Indication: Product used for unknown indication
     Route: 065
  2. VENLAFAXINE [Suspect]
     Active Substance: VENLAFAXINE HYDROCHLORIDE
     Indication: Product used for unknown indication
     Dosage: VENLAFAXINE HYDROCHLORIDE
     Route: 065
  3. LOXAPINE [Suspect]
     Active Substance: LOXAPINE
     Indication: Product used for unknown indication
     Route: 065
  4. COCAINE [Suspect]
     Active Substance: COCAINE
     Indication: Product used for unknown indication
     Route: 065

REACTIONS (4)
  - Tachycardia [Recovered/Resolved]
  - Drug use disorder [Unknown]
  - Substance use disorder [Unknown]
  - Poisoning [Recovered/Resolved]

NARRATIVE: CASE EVENT DATE: 20250610
